FAERS Safety Report 8369647-4 (Version None)
Quarter: 2012Q2

REPORT INFORMATION
  Report Type: 
  Country: None (occurrence: None)
  Receive Date: 20120518
  Receipt Date: 20120503
  Transmission Date: 20120825
  Serious: Yes (Death, Life-Threatening, Hospitalization, Other)
  Sender: FDA-Public Use
  Company Number: US-MYLANLABS-2009AC000265

PATIENT
  Sex: Female
  Weight: 54.43 kg

DRUGS (32)
  1. PROMETHAZINE [Concomitant]
  2. ZOLPIDEM [Concomitant]
  3. NATRECOR [Concomitant]
  4. POLYSACCHARIDE IRON [Concomitant]
  5. FUROSEMIDE [Concomitant]
  6. LEVAQUIN [Concomitant]
  7. HYDROXYZINE [Concomitant]
  8. SPIRONOLACTONE [Concomitant]
  9. MORPHINE [Concomitant]
  10. NAPROXEN [Concomitant]
  11. TRAMADOL HYDROCHLORIDE [Concomitant]
  12. AMOXICILLIN [Concomitant]
  13. ACYCLOVIR [Concomitant]
  14. CYANOCOBALAMIN [Concomitant]
  15. ASPIRIN [Concomitant]
  16. COREG [Concomitant]
  17. ALBUTEROL [Concomitant]
  18. DILTIAZEM [Concomitant]
  19. LOVENOX [Concomitant]
  20. SOLU-MEDROL [Concomitant]
  21. LORCET-HD [Concomitant]
  22. KLOR-CON [Concomitant]
  23. METRONIDAZOLE [Concomitant]
  24. ISOSORBIDE DINITRATE [Concomitant]
  25. TRAMADOL HYDROCHLORIDE [Concomitant]
  26. CALCIUM [Concomitant]
  27. SULAR [Concomitant]
  28. WARFARIN SODIUM [Concomitant]
  29. PRILOSEC [Concomitant]
  30. DIGOXIN [Suspect]
     Indication: CARDIAC DISORDER
     Route: 048
     Dates: start: 20050930, end: 20080208
  31. ENALAPRIL MALEATE [Concomitant]
  32. ACETAMINOPHEN [Concomitant]

REACTIONS (103)
  - CHEST PAIN [None]
  - CREPITATIONS [None]
  - LEFT VENTRICULAR DYSFUNCTION [None]
  - DEMENTIA [None]
  - CARDIAC VALVE DISEASE [None]
  - BACK PAIN [None]
  - INTERSTITIAL LUNG DISEASE [None]
  - MITRAL VALVE CALCIFICATION [None]
  - SKIN DISCOLOURATION [None]
  - WEIGHT DECREASED [None]
  - DEATH [None]
  - ELECTROCARDIOGRAM ABNORMAL [None]
  - BRADYCARDIA [None]
  - MITRAL VALVE INCOMPETENCE [None]
  - MASS [None]
  - ABDOMINAL DISTENSION [None]
  - ARTHRALGIA [None]
  - GENERAL PHYSICAL HEALTH DETERIORATION [None]
  - HEART SOUNDS ABNORMAL [None]
  - METASTASES TO LIVER [None]
  - OSTEOPENIA [None]
  - PRODUCTIVE COUGH [None]
  - RALES [None]
  - SKIN LESION [None]
  - WHITE BLOOD CELLS URINE POSITIVE [None]
  - DEHYDRATION [None]
  - INTERNATIONAL NORMALISED RATIO DECREASED [None]
  - OXYGEN SATURATION ABNORMAL [None]
  - MALIGNANT MELANOMA [None]
  - PULMONARY HYPERTENSION [None]
  - ABDOMINAL TENDERNESS [None]
  - BREATH SOUNDS ABNORMAL [None]
  - CONJUNCTIVAL PALLOR [None]
  - METASTASES TO BONE [None]
  - PAIN IN EXTREMITY [None]
  - PERIPHERAL COLDNESS [None]
  - RENAL ATROPHY [None]
  - DYSPNOEA [None]
  - RESPIRATORY DISTRESS [None]
  - HEART RATE IRREGULAR [None]
  - ENDOTRACHEAL INTUBATION [None]
  - MECHANICAL VENTILATION [None]
  - INTERNATIONAL NORMALISED RATIO INCREASED [None]
  - DIZZINESS [None]
  - URINARY TRACT INFECTION [None]
  - RESPIRATORY FAILURE [None]
  - DISEASE PROGRESSION [None]
  - ANXIETY [None]
  - BLOOD PRESSURE DIASTOLIC INCREASED [None]
  - EXOSTOSIS [None]
  - HEPATIC LESION [None]
  - JUGULAR VEIN DISTENSION [None]
  - PYREXIA [None]
  - SOMNOLENCE [None]
  - CHEST X-RAY ABNORMAL [None]
  - ASTHENIA [None]
  - ARTHRITIS [None]
  - PULMONARY FIBROSIS [None]
  - ARTERIOSCLEROSIS [None]
  - CONDITION AGGRAVATED [None]
  - GAIT DISTURBANCE [None]
  - HAEMOGLOBIN DECREASED [None]
  - OEDEMA PERIPHERAL [None]
  - INJURY [None]
  - ECONOMIC PROBLEM [None]
  - SURGERY [None]
  - HYPERKALAEMIA [None]
  - OEDEMA [None]
  - GASTROINTESTINAL SOUNDS ABNORMAL [None]
  - ATRIAL FIBRILLATION [None]
  - VENTRICULAR TACHYCARDIA [None]
  - BRAIN NATRIURETIC PEPTIDE INCREASED [None]
  - PNEUMONIA [None]
  - PERIPHERAL VASCULAR DISORDER [None]
  - ATELECTASIS [None]
  - PULMONARY OEDEMA [None]
  - INFECTION [None]
  - ABDOMINAL PAIN [None]
  - ANAEMIA [None]
  - CARDIAC MURMUR [None]
  - CARDIOMEGALY [None]
  - FUNGATING WOUND [None]
  - HYPERGLYCAEMIA [None]
  - HYPERTENSION [None]
  - REFUSAL OF TREATMENT BY PATIENT [None]
  - RHONCHI [None]
  - CARDIAC FAILURE CONGESTIVE [None]
  - PROTHROMBIN LEVEL INCREASED [None]
  - PROTHROMBIN TIME PROLONGED [None]
  - DIVERTICULITIS [None]
  - PLEURAL EFFUSION [None]
  - AORTIC STENOSIS [None]
  - METASTATIC NEOPLASM [None]
  - OBESITY [None]
  - CARDIAC DISORDER [None]
  - HOSPITALISATION [None]
  - RENAL FAILURE CHRONIC [None]
  - CORONARY ARTERY DISEASE [None]
  - CELLULITIS [None]
  - INTERVERTEBRAL DISC SPACE NARROWING [None]
  - LEFT ATRIAL DILATATION [None]
  - NAUSEA [None]
  - VENTRICULAR HYPOKINESIA [None]
